FAERS Safety Report 7610209-1 (Version None)
Quarter: 2011Q3

REPORT INFORMATION
  Report Type: 
  Country: None (occurrence: None)
  Receive Date: 20110715
  Receipt Date: 20110707
  Transmission Date: 20111222
  Serious: No
  Sender: FDA-Public Use
  Company Number: US-BIOGENIDEC-2011BI025543

PATIENT
  Sex: Female

DRUGS (2)
  1. AVONEX [Suspect]
     Indication: MULTIPLE SCLEROSIS
     Route: 030
     Dates: start: 19980901, end: 20110601
  2. AMPYRA [Concomitant]
     Indication: PRODUCT USED FOR UNKNOWN INDICATION
     Dates: start: 20110101

REACTIONS (6)
  - VITAMIN B12 DEFICIENCY [None]
  - SPEECH DISORDER [None]
  - DIZZINESS [None]
  - DISTURBANCE IN ATTENTION [None]
  - MUSCULAR WEAKNESS [None]
  - BALANCE DISORDER [None]
